FAERS Safety Report 6087524-9 (Version None)
Quarter: 2009Q1

REPORT INFORMATION
  Report Type: 
  Country: None (occurrence: None)
  Receive Date: 20090218
  Receipt Date: 20090218
  Transmission Date: 20090719
  Serious: Yes (Death, Hospitalization)
  Sender: FDA-Public Use
  Company Number: None

PATIENT
  Sex: Male

DRUGS (1)
  1. OMNIPAQUE 240 [Suspect]
     Indication: CATHETER PLACEMENT
     Dates: start: 20080324, end: 20080324

REACTIONS (11)
  - ANOREXIA [None]
  - CARDIAC ARREST [None]
  - CONTRAST MEDIA REACTION [None]
  - DYSPHAGIA [None]
  - DYSPNOEA [None]
  - HEADACHE [None]
  - HYPOTENSION [None]
  - NAUSEA [None]
  - RASH [None]
  - THIRST [None]
  - VOMITING [None]
